FAERS Safety Report 23284193 (Version 1)
Quarter: 2023Q4

REPORT INFORMATION
  Report Type: Spontaneous
  Country: US (occurrence: None)
  Receive Date: 20231211
  Receipt Date: 20231211
  Transmission Date: 20240109
  Serious: Yes (unspecified)
  Sender: FDA-Public Use
  Company Number: None

PATIENT
  Age: 37 Year
  Sex: Male

DRUGS (1)
  1. SKYRIZI [Suspect]
     Active Substance: RISANKIZUMAB-RZAA

REACTIONS (9)
  - Illness [None]
  - Pain [None]
  - Diarrhoea [None]
  - Abdominal pain [None]
  - Vomiting [None]
  - Sinus disorder [None]
  - Headache [None]
  - Wheezing [None]
  - Pharyngeal erythema [None]
